FAERS Safety Report 20437462 (Version 2)
Quarter: 2022Q1

REPORT INFORMATION
  Report Type: Spontaneous
  Country: PT (occurrence: PT)
  Receive Date: 20220207
  Receipt Date: 20220223
  Transmission Date: 20220424
  Serious: Yes (Other)
  Sender: FDA-Public Use
  Company Number: PT-PFIZER INC-202200148932

PATIENT
  Age: 65 Year
  Sex: Male

DRUGS (2)
  1. LINEZOLID [Interacting]
     Active Substance: LINEZOLID
     Indication: Bacteraemia
     Dosage: UNK
  2. TAPENTADOL [Interacting]
     Active Substance: TAPENTADOL
     Dosage: UNK

REACTIONS (3)
  - Drug interaction [Unknown]
  - Delirium [Unknown]
  - Off label use [Unknown]
